FAERS Safety Report 10023508 (Version 2)
Quarter: 2014Q2

REPORT INFORMATION
  Report Type: Spontaneous
  Country: US (occurrence: US)
  Receive Date: 20140320
  Receipt Date: 20140424
  Transmission Date: 20141212
  Serious: Yes (Other)
  Sender: FDA-Public Use
  Company Number: US-AMGEN-USASP2014019313

PATIENT
  Age: 45 Year
  Sex: Female
  Weight: 102.4 kg

DRUGS (8)
  1. ENBREL [Suspect]
     Indication: PRODUCT USED FOR UNKNOWN INDICATION
     Dosage: 50 MG, QWK
     Route: 058
  2. PROTONIX [Concomitant]
     Dosage: 40 MG, UNK
  3. TOPAMAX [Concomitant]
     Dosage: 100 MG, UNK
  4. NEURONTIN [Concomitant]
     Dosage: 100 MG, UNK
  5. WELLBUTRIN [Concomitant]
     Dosage: 100 MG, UNK
  6. NEXIUM                             /01479302/ [Concomitant]
     Dosage: 20 MG, UNK
  7. STOOL SOFTENER [Concomitant]
     Dosage: UNK 100-30
  8. LEVOCETIRIZIN [Concomitant]
     Dosage: 5 MG, UNK

REACTIONS (4)
  - Pneumonia [Recovered/Resolved]
  - Sinusitis [Recovered/Resolved]
  - Infection [Recovered/Resolved]
  - Pleurisy [Recovered/Resolved]
